FAERS Safety Report 19351881 (Version 2)
Quarter: 2021Q2

REPORT INFORMATION
  Report Type: Spontaneous
  Country: JP (occurrence: JP)
  Receive Date: 20210531
  Receipt Date: 20210614
  Transmission Date: 20210717
  Serious: Yes (Hospitalization, Other)
  Sender: FDA-Public Use
  Company Number: JP-GLAXOSMITHKLINE-JP2021JPN112606

PATIENT
  Age: 83 Year
  Sex: Female
  Weight: 35 kg

DRUGS (9)
  1. TARLIGE TABLETS [Concomitant]
     Dosage: UNK
  2. PREDNISOLONE TABLETS [Concomitant]
     Active Substance: PREDNISOLONE
     Dosage: UNK
     Dates: start: 20201008
  3. PREDNISOLONE TABLETS [Concomitant]
     Active Substance: PREDNISOLONE
     Dosage: UNK
  4. VALTREX [Suspect]
     Active Substance: VALACYCLOVIR HYDROCHLORIDE
     Indication: HERPES ZOSTER
     Dosage: UNK
     Route: 048
  5. TAKEPRON OD TABLETS [Concomitant]
     Dosage: UNK
  6. NIFEDIPINE CR TABLETS [Concomitant]
     Dosage: UNK
  7. CALONAL [Concomitant]
     Active Substance: ACETAMINOPHEN
     Dosage: UNK, PRN
  8. SODIUM BICARBONATE. [Concomitant]
     Active Substance: SODIUM BICARBONATE
     Dosage: UNK
  9. AZILVA TABLETS [Concomitant]
     Dosage: UNK

REACTIONS (9)
  - Dehydration [Unknown]
  - Metabolic acidosis [Unknown]
  - Renal tubular acidosis [Recovering/Resolving]
  - Acidosis [Unknown]
  - Eating disorder [Unknown]
  - Overdose [Unknown]
  - Malaise [Recovering/Resolving]
  - Hyperkalaemia [Recovering/Resolving]
  - Dyskinesia [Recovered/Resolved]

NARRATIVE: CASE EVENT DATE: 20201006
